FAERS Safety Report 4824996-9 (Version None)
Quarter: 2005Q4

REPORT INFORMATION
  Report Type: 
  Country: None (occurrence: None)
  Receive Date: 20051109
  Receipt Date: 20051109
  Transmission Date: 20060501
  Serious: Yes (Hospitalization)
  Sender: FDA-Public Use
  Company Number: None

PATIENT
  Age: 42 Year
  Sex: Female

DRUGS (1)
  1. LIDOCAINE AND EPINEPHRINE [Suspect]
     Indication: LOCAL ANAESTHESIA
     Dosage: 20ML   ONCE
     Dates: start: 20050721, end: 20050721

REACTIONS (8)
  - ARTERIOSPASM CORONARY [None]
  - BLOOD PRESSURE INCREASED [None]
  - ELECTROCARDIOGRAM ST SEGMENT DEPRESSION [None]
  - ELECTROCARDIOGRAM T WAVE INVERSION [None]
  - HEART RATE DECREASED [None]
  - MYOCARDIAL INFARCTION [None]
  - PROCEDURAL COMPLICATION [None]
  - SINUS TACHYCARDIA [None]
